FAERS Safety Report 4919748-5 (Version None)
Quarter: 2006Q1

REPORT INFORMATION
  Report Type: 
  Country: None (occurrence: None)
  Receive Date: 20060223
  Receipt Date: 20060105
  Transmission Date: 20060701
  Serious: Yes (Hospitalization)
  Sender: FDA-Public Use
  Company Number: FR-SP-2006-00043

PATIENT
  Age: 57 Year
  Sex: Male

DRUGS (2)
  1. IMMUCYST [Suspect]
     Indication: BLADDER CANCER
     Route: 043
     Dates: start: 20050117
  2. IMMUCYST [Suspect]
     Route: 043
     Dates: start: 20050117

REACTIONS (9)
  - DISSEMINATED TUBERCULOSIS [None]
  - FATIGUE [None]
  - GRANULOMA [None]
  - HAEMATURIA [None]
  - INTERSTITIAL LUNG DISEASE [None]
  - JAUNDICE CHOLESTATIC [None]
  - PYREXIA [None]
  - RESPIRATORY FAILURE [None]
  - VOMITING [None]
